FAERS Safety Report 22032783 (Version 1)
Quarter: 2023Q1

REPORT INFORMATION
  Report Type: Spontaneous
  Country: CN (occurrence: CN)
  Receive Date: 20230224
  Receipt Date: 20230224
  Transmission Date: 20230417
  Serious: Yes (Hospitalization, Other)
  Sender: FDA-Public Use
  Company Number: CN-SA-SAC20230221000130

PATIENT
  Age: 60 Year
  Sex: Female
  Weight: 56 kg

DRUGS (1)
  1. ENOXAPARIN SODIUM [Suspect]
     Active Substance: ENOXAPARIN SODIUM
     Indication: Acute myocardial infarction
     Dosage: 0.4 ML BID
     Route: 058
     Dates: start: 20230210, end: 20230214

REACTIONS (11)
  - Cardiac dysfunction [Recovering/Resolving]
  - Chest discomfort [Recovering/Resolving]
  - Chest pain [Recovering/Resolving]
  - Acute myocardial infarction [Recovering/Resolving]
  - Coronary artery disease [Recovering/Resolving]
  - Sinus rhythm [Recovering/Resolving]
  - Hypertension [Recovering/Resolving]
  - Hepatic steatosis [Recovering/Resolving]
  - Nephrolithiasis [Recovering/Resolving]
  - Ecchymosis [Recovering/Resolving]
  - Condition aggravated [Not Recovered/Not Resolved]

NARRATIVE: CASE EVENT DATE: 20230212
